FAERS Safety Report 8833929 (Version 2)
Quarter: 2012Q4

REPORT INFORMATION
  Report Type: 
  Country: US (occurrence: US)
  Receive Date: 20121010
  Receipt Date: 20121130
  Transmission Date: 20130627
  Serious: Yes (Other)
  Sender: FDA-Public Use
  Company Number: CHPA2012US020869

PATIENT
  Age: 14 Year
  Sex: Female
  Weight: 125 kg

DRUGS (1)
  1. EXCEDRIN MIGRAINE [Suspect]
     Indication: MIGRAINE
     Dosage: 2 tabs, one time only
     Route: 048
     Dates: start: 20120925, end: 20120925

REACTIONS (5)
  - Dehydration [Recovered/Resolved]
  - Palpitations [Recovered/Resolved]
  - Mydriasis [Recovered/Resolved]
  - Tremor [Recovered/Resolved]
  - Heart rate increased [Recovered/Resolved]
